FAERS Safety Report 9524938 (Version 1)
Quarter: 2013Q3

REPORT INFORMATION
  Report Type: Spontaneous
  Country: US (occurrence: None)
  Receive Date: 20130912
  Receipt Date: 20130912
  Transmission Date: 20140515
  Serious: Yes (Other)
  Sender: FDA-Public Use
  Company Number: None

PATIENT
  Age: 68 Year
  Sex: Female
  Weight: 81.65 kg

DRUGS (1)
  1. PROLIA [Suspect]
     Indication: THERAPY CHANGE
     Dates: start: 20130418, end: 20131018

REACTIONS (3)
  - Pruritus generalised [None]
  - Erythema [None]
  - Condition aggravated [None]
